FAERS Safety Report 9236423 (Version 3)
Quarter: 2013Q2

REPORT INFORMATION
  Report Type: Spontaneous
  Country: JP (occurrence: None)
  Receive Date: 20130415
  Receipt Date: 20130501
  Transmission Date: 20140414
  Serious: Yes (Death)
  Sender: FDA-Public Use
  Company Number: TCI2013A02000

PATIENT
  Age: 68 Year
  Sex: Female

DRUGS (4)
  1. NESINA [Suspect]
     Indication: TYPE 2 DIABETES MELLITUS
     Dosage: 356 DAYS
     Route: 048
     Dates: start: 20111022, end: 20121012
  2. SINGULAIR [Concomitant]
  3. UNIPHYL LA (THEOPHYLLINE) [Concomitant]
  4. MUCODYNE (CARBOCISTEINE) [Concomitant]

REACTIONS (1)
  - Death [None]
